FAERS Safety Report 17700287 (Version 2)
Quarter: 2020Q2

REPORT INFORMATION
  Report Type: Spontaneous
  Country: US (occurrence: US)
  Receive Date: 20200423
  Receipt Date: 20200611
  Transmission Date: 20200714
  Serious: No
  Sender: FDA-Public Use
  Company Number: US-TOLMAR, INC.-20US020986

PATIENT

DRUGS (3)
  1. ELIGARD [Suspect]
     Active Substance: LEUPROLIDE ACETATE
     Indication: PROSTATE CANCER
     Dosage: 7.5 MG, Q 1 MONTH
     Route: 058
     Dates: start: 20191014
  2. ELIGARD [Suspect]
     Active Substance: LEUPROLIDE ACETATE
     Dosage: 7.5 MG, Q 1 MONTH
     Route: 058
     Dates: start: 20200402
  3. DAROLUTAMIDE. [Concomitant]
     Active Substance: DAROLUTAMIDE
     Indication: PROSTATE CANCER
     Dosage: 600 MG, BID
     Route: 048
     Dates: end: 20200402

REACTIONS (4)
  - Intercepted product preparation error [None]
  - Syringe issue [None]
  - Wrong technique in product usage process [None]
  - Device leakage [None]

NARRATIVE: CASE EVENT DATE: 20200402
